FAERS Safety Report 17504055 (Version 1)
Quarter: 2020Q1

REPORT INFORMATION
  Report Type: Spontaneous
  Country: US (occurrence: US)
  Receive Date: 20200305
  Receipt Date: 20200305
  Transmission Date: 20200409
  Serious: Yes (Other)
  Sender: FDA-Public Use
  Company Number: US-BAYER-2020-034721

PATIENT
  Sex: Male

DRUGS (1)
  1. RID ESSENTIAL LICE ELIMINATION KIT [Suspect]
     Active Substance: PIPERONYL BUTOXIDE\PYRETHRUM EXTRACT
     Indication: LICE INFESTATION
     Route: 061

REACTIONS (1)
  - Haemorrhage [Unknown]
